FAERS Safety Report 8841274 (Version 3)
Quarter: 2013Q1

REPORT INFORMATION
  Report Type: Spontaneous
  Country: US (occurrence: US)
  Receive Date: 20121015
  Receipt Date: 20130305
  Transmission Date: 20140127
  Serious: No
  Sender: FDA-Public Use
  Company Number: US-VERTEX PHARMACEUTICAL INC.-2012-022640

PATIENT
  Age: 49 Year
  Sex: Male
  Weight: 77 kg

DRUGS (12)
  1. INCIVEK [Suspect]
     Indication: HEPATITIS C
     Dosage: 750 MG, TID
     Route: 048
     Dates: start: 20120925
  2. RIBAVIRIN [Suspect]
     Indication: HEPATITIS C
     Dosage: 1 DF, BID
     Route: 048
     Dates: start: 20120925
  3. PEGASYS [Suspect]
     Indication: HEPATITIS C
     Dosage: 180 ?G, QW
     Route: 058
     Dates: start: 20120925
  4. ISOSORBIDE [Concomitant]
     Indication: ARTERIOSPASM CORONARY
     Dosage: 30 MG, QD
     Route: 048
     Dates: start: 2007
  5. AMLODIPINE [Concomitant]
     Indication: ARTERIOSPASM CORONARY
     Dosage: 5 MG, QD
     Route: 048
     Dates: start: 2007
  6. LORAZEPAM [Concomitant]
     Indication: ARTERIOSPASM CORONARY
     Dosage: 0.5 MG, UNK
  7. IMDUR [Concomitant]
     Dosage: 30 MG, QD
  8. NORVASC [Concomitant]
     Dosage: 5 MG, QD
  9. FISH OIL [Concomitant]
  10. PREPARATION H [Concomitant]
  11. ZOFRAN [Concomitant]
  12. CLOPIDOGREL [Concomitant]

REACTIONS (9)
  - Blood pressure increased [Not Recovered/Not Resolved]
  - Heart rate increased [Not Recovered/Not Resolved]
  - Influenza like illness [Not Recovered/Not Resolved]
  - Pallor [Not Recovered/Not Resolved]
  - Asthenia [Not Recovered/Not Resolved]
  - Fatigue [Not Recovered/Not Resolved]
  - Haemoglobin decreased [Not Recovered/Not Resolved]
  - Platelet count decreased [Not Recovered/Not Resolved]
  - Nausea [Not Recovered/Not Resolved]
